FAERS Safety Report 19677943 (Version 2)
Quarter: 2025Q2

REPORT INFORMATION
  Report Type: Spontaneous
  Country: IT (occurrence: IT)
  Receive Date: 20210810
  Receipt Date: 20250625
  Transmission Date: 20250716
  Serious: Yes (Other)
  Sender: AUROBINDO
  Company Number: IT-MLMSERVICE-20210709-2993666-1

PATIENT
  Age: 76 Year
  Sex: Male

DRUGS (5)
  1. BISOPROLOL FUMARATE [Suspect]
     Active Substance: BISOPROLOL FUMARATE
     Indication: Arrhythmia
     Dosage: 1.25 MILLIGRAM, ONCE A DAY(LOW DOSES)
     Route: 048
     Dates: start: 20200428, end: 20200618
  2. TAMSULOSIN [Concomitant]
     Active Substance: TAMSULOSIN
     Indication: Benign prostatic hyperplasia
     Route: 065
  3. RIFAXIMIN [Concomitant]
     Active Substance: RIFAXIMIN
     Indication: Diverticulum
     Route: 065
  4. DUTASTERIDE [Concomitant]
     Active Substance: DUTASTERIDE
     Indication: Benign prostatic hyperplasia
     Route: 065
  5. PREDNISONE [Concomitant]
     Active Substance: PREDNISONE
     Indication: Organising pneumonia
     Dosage: 37.5 MILLIGRAM, ONCE A DAY
     Route: 065
     Dates: start: 2020

REACTIONS (2)
  - Cardiotoxicity [Recovered/Resolved]
  - Sinus bradycardia [Recovered/Resolved]

NARRATIVE: CASE EVENT DATE: 20200618
